FAERS Safety Report 4694682-7 (Version None)
Quarter: 2005Q2

REPORT INFORMATION
  Report Type: 
  Country: None (occurrence: None)
  Receive Date: 20050620
  Receipt Date: 20050609
  Transmission Date: 20051028
  Serious: Yes (Hospitalization)
  Sender: FDA-Public Use
  Company Number: FR-GLAXOSMITHKLINE-B0384492A

PATIENT
  Age: 62 Year
  Sex: Male

DRUGS (25)
  1. AUGMENTIN '125' [Suspect]
     Indication: SUPERINFECTION LUNG
     Dosage: 3G PER DAY
     Route: 042
     Dates: start: 20050506, end: 20050511
  2. TARGOCID [Suspect]
     Indication: SUPERINFECTION LUNG
     Dosage: 400MG PER DAY
     Route: 042
     Dates: start: 20050511, end: 20050523
  3. LASILIX [Suspect]
     Dosage: 40MG PER DAY
     Route: 042
     Dates: start: 20050518, end: 20050521
  4. SERETIDE [Concomitant]
     Route: 065
  5. AMODEX [Concomitant]
     Indication: SUPERINFECTION LUNG
     Route: 065
     Dates: start: 20050519
  6. SURBRONC [Concomitant]
     Route: 065
  7. MONOTILDIEM [Concomitant]
     Route: 065
  8. NEURONTIN [Concomitant]
     Dosage: 1200MG PER DAY
     Route: 065
  9. KARDEGIC [Concomitant]
     Route: 065
  10. FUROSEMIDE [Concomitant]
     Route: 065
  11. IKOREL [Concomitant]
     Dosage: 20MG TWICE PER DAY
     Route: 065
  12. COZAAR [Concomitant]
     Route: 065
  13. COMBIVENT [Concomitant]
     Route: 065
  14. ZOCOR [Concomitant]
     Route: 065
  15. AMPECYCLAL [Concomitant]
     Route: 065
  16. SOLUPRED [Concomitant]
     Dosage: 20MG PER DAY
     Route: 065
  17. PLAVIX [Concomitant]
     Route: 065
     Dates: start: 20050507
  18. ACTRAPID [Concomitant]
     Route: 065
     Dates: start: 20050507, end: 20050501
  19. MIXTARD HUMAN 70/30 [Concomitant]
     Route: 065
     Dates: start: 20050519
  20. HEPARIN [Concomitant]
     Route: 065
  21. CALCIPARINE [Concomitant]
     Route: 065
  22. COVERSYL [Concomitant]
     Route: 065
     Dates: start: 20050507
  23. FLAGYL [Concomitant]
     Indication: SUPERINFECTION LUNG
     Route: 065
     Dates: start: 20050511, end: 20050519
  24. CLAFORAN [Concomitant]
     Indication: SUPERINFECTION LUNG
     Route: 065
     Dates: start: 20050511, end: 20050519
  25. ART 50 [Concomitant]
     Route: 065

REACTIONS (5)
  - ACUTE GENERALISED EXANTHEMATOUS PUSTULOSIS [None]
  - LEUKOCYTOSIS [None]
  - NEUTROPHIL COUNT INCREASED [None]
  - RASH ERYTHEMATOUS [None]
  - RASH PUSTULAR [None]
